FAERS Safety Report 24347019 (Version 2)
Quarter: 2024Q4

REPORT INFORMATION
  Report Type: Report from Study
  Country: US (occurrence: US)
  Receive Date: 20240921
  Receipt Date: 20241104
  Transmission Date: 20250114
  Serious: Yes (Death, Other)
  Sender: ROCHE
  Company Number: US-ROCHE-10000076319

PATIENT
  Age: 69 Year
  Sex: Male
  Weight: 110.22 kg

DRUGS (2)
  1. OCREVUS [Suspect]
     Active Substance: OCRELIZUMAB
     Indication: Relapsing multiple sclerosis
     Dosage: DATE OF TREATMENT: 19/SEP/2023, 15/APR/2024.
     Route: 042
     Dates: start: 20180628
  2. SODIUM CHLORIDE [Concomitant]
     Active Substance: SODIUM CHLORIDE

REACTIONS (3)
  - Creutzfeldt-Jakob disease [Fatal]
  - Seizure [Unknown]
  - Dementia [Unknown]

NARRATIVE: CASE EVENT DATE: 20240716
